FAERS Safety Report 10213214 (Version 4)
Quarter: 2014Q2

REPORT INFORMATION
  Report Type: Spontaneous
  Country: JP (occurrence: JP)
  Receive Date: 20140603
  Receipt Date: 20140627
  Transmission Date: 20141212
  Serious: Yes (Death)
  Sender: FDA-Public Use
  Company Number: JP-BRISTOL-MYERS SQUIBB COMPANY-20880589

PATIENT
  Age: 80 Year
  Sex: Female
  Weight: 43 kg

DRUGS (2)
  1. ELIQUIS [Suspect]
     Route: 048
     Dates: start: 20140514, end: 20140515
  2. XARELTO [Suspect]

REACTIONS (1)
  - Arrhythmia [Fatal]
